FAERS Safety Report 6402214-8 (Version None)
Quarter: 2009Q4

REPORT INFORMATION
  Report Type: 
  Country: None (occurrence: None)
  Receive Date: 20091014
  Receipt Date: 20091014
  Transmission Date: 20100525
  Serious: Yes (Other)
  Sender: FDA-Public Use
  Company Number: None

PATIENT
  Sex: Female
  Weight: 81.6475 kg

DRUGS (1)
  1. CYCLOBENAZPRINE [Suspect]
     Indication: MUSCLE STRAIN
     Dosage: 1 TABLET EVERY 8 HOUR
     Dates: start: 20090812, end: 20090816

REACTIONS (3)
  - BLOOD PRESSURE DIASTOLIC DECREASED [None]
  - CONVULSION [None]
  - TREMOR [None]
